FAERS Safety Report 11075034 (Version 1)
Quarter: 2015Q2

REPORT INFORMATION
  Report Type: Spontaneous
  Country: US (occurrence: None)
  Receive Date: 20150428
  Receipt Date: 20150428
  Transmission Date: 20150821
  Serious: Yes (Other)
  Sender: FDA-Public Use
  Company Number: None

PATIENT
  Age: 68 Year
  Sex: Female
  Weight: 48.99 kg

DRUGS (7)
  1. ZN MINERAL SUPPLIMENT [Concomitant]
  2. EXELON PATCH [Suspect]
     Active Substance: RIVASTIGMINE
     Indication: NUCLEAR MAGNETIC RESONANCE IMAGING
     Route: 061
     Dates: start: 20150411, end: 20150424
  3. MG [Concomitant]
     Active Substance: MAGNESIUM
  4. EXELON PATCH [Suspect]
     Active Substance: RIVASTIGMINE
     Indication: NEUROBORRELIOSIS
     Route: 061
     Dates: start: 20150411, end: 20150424
  5. CA [Concomitant]
  6. MN [Concomitant]
  7. CA (AND D) [Concomitant]

REACTIONS (13)
  - Swollen tongue [None]
  - Dysphonia [None]
  - Skin haemorrhage [None]
  - Pruritus [None]
  - Product quality issue [None]
  - Diarrhoea [None]
  - Dermatitis allergic [None]
  - Swelling face [None]
  - Nausea [None]
  - Blister [None]
  - Dyspnoea [None]
  - Rash [None]
  - Decreased appetite [None]

NARRATIVE: CASE EVENT DATE: 20150425
